FAERS Safety Report 8749267 (Version 2)
Quarter: 2012Q4

REPORT INFORMATION
  Report Type: 
  Country: CA (occurrence: None)
  Receive Date: 20120806
  Receipt Date: 20120925
  Transmission Date: 20130627
  Serious: Yes (Hospitalization, Other)
  Sender: FDA-Public Use
  Company Number: AECAN201200391

PATIENT
  Age: 59 Year
  Sex: Female
  Weight: 49.5 kg

DRUGS (9)
  1. IGIVNEX [Suspect]
     Indication: DERMATOMYOSITIS
     Route: 042
     Dates: start: 20120109, end: 20120501
  2. GAMUNEX [Suspect]
     Indication: DERMATOMYOSITIS
     Route: 042
     Dates: start: 20120110, end: 20120501
  3. METHOTREXATE [Concomitant]
  4. FOLIC ACID [Concomitant]
  5. SYNTHROID [Concomitant]
  6. PANTOPRAZOLE [Concomitant]
  7. CARBOCAL D [Concomitant]
  8. PREMARIN [Concomitant]
  9. FOSAMAX [Concomitant]

REACTIONS (8)
  - Nausea [None]
  - Vomiting [None]
  - Aphasia [None]
  - Dysgraphia [None]
  - Acalculia [None]
  - Meningitis [None]
  - Mycobacterial infection [None]
  - Meningoencephalitis herpetic [None]
